FAERS Safety Report 25669403 (Version 1)
Quarter: 2025Q3

REPORT INFORMATION
  Report Type: Spontaneous
  Country: US (occurrence: US)
  Receive Date: 20250812
  Receipt Date: 20250812
  Transmission Date: 20251021
  Serious: Yes (Other)
  Sender: RANBAXY
  Company Number: US-SUN PHARMACEUTICAL INDUSTRIES LTD-2024R1-464172

PATIENT
  Sex: Female

DRUGS (2)
  1. ODOMZO [Suspect]
     Active Substance: SONIDEGIB
     Indication: Basal cell carcinoma
     Route: 048
     Dates: start: 20240618
  2. ODOMZO [Suspect]
     Active Substance: SONIDEGIB
     Route: 048
     Dates: end: 20241120

REACTIONS (2)
  - Therapeutic response decreased [Unknown]
  - Muscle spasms [Unknown]
